FAERS Safety Report 6231018-4 (Version None)
Quarter: 2009Q2

REPORT INFORMATION
  Report Type: 
  Country: None (occurrence: None)
  Receive Date: 20090616
  Receipt Date: 20090608
  Transmission Date: 20091009
  Serious: Yes (Death, Hospitalization, Other)
  Sender: FDA-Public Use
  Company Number: US-PFIZER INC-2008093231

PATIENT
  Sex: Male

DRUGS (1)
  1. CHANTIX [Suspect]
     Dosage: UNK
     Dates: start: 20070101

REACTIONS (5)
  - ABNORMAL DREAMS [None]
  - CARDIAC FAILURE CONGESTIVE [None]
  - DEATH [None]
  - DIABETES MELLITUS [None]
  - INFECTION [None]
